FAERS Safety Report 9276986 (Version 2)
Quarter: 2013Q2

REPORT INFORMATION
  Report Type: Spontaneous
  Country: FR (occurrence: FR)
  Receive Date: 20130507
  Receipt Date: 20130507
  Transmission Date: 20140414
  Serious: Yes (Other)
  Sender: FDA-Public Use
  Company Number: FR-ABBOTT-13P-056-1067788-00

PATIENT
  Age: 67 Year
  Sex: Male

DRUGS (2)
  1. ENANTONE LP 11.25 MG PREP INJ [Suspect]
     Indication: PROSTATE CANCER
     Dates: start: 20120419
  2. CASODEX [Concomitant]
     Indication: PROSTATE CANCER
     Dates: start: 201002

REACTIONS (6)
  - Prostatic specific antigen increased [Not Recovered/Not Resolved]
  - Drug dispensing error [Not Recovered/Not Resolved]
  - Wrong drug administered [Not Recovered/Not Resolved]
  - Prostate cancer [None]
  - Drug dispensing error [None]
  - Incorrect dose administered [None]
